FAERS Safety Report 21025428 (Version 1)
Quarter: 2022Q2

REPORT INFORMATION
  Report Type: Spontaneous
  Country: FR (occurrence: FR)
  Receive Date: 20220630
  Receipt Date: 20220630
  Transmission Date: 20220721
  Serious: Yes (Other)
  Sender: FDA-Public Use
  Company Number: FR-AFSSAPS-MP20222146

PATIENT
  Age: 76 Year
  Sex: Male
  Weight: 92.2 kg

DRUGS (1)
  1. BISOPROLOL [Suspect]
     Active Substance: BISOPROLOL
     Indication: Product used for unknown indication
     Dosage: UNK
     Route: 065

REACTIONS (2)
  - Erectile dysfunction [Unknown]
  - Micturition disorder [Recovering/Resolving]

NARRATIVE: CASE EVENT DATE: 20220301
